FAERS Safety Report 9506737 (Version 1)
Quarter: 2013Q3

REPORT INFORMATION
  Report Type: Report from Study
  Country: JP (occurrence: JP)
  Receive Date: 20130908
  Receipt Date: 20130908
  Transmission Date: 20140515
  Serious: Yes (Other)
  Sender: FDA-Public Use
  Company Number: JP-009507513-1308JPN012918

PATIENT
  Age: 61 Year
  Sex: Female

DRUGS (2)
  1. PEGINTRON POWDER FOR INJECTION 150MICROG [Suspect]
     Route: 058
     Dates: start: 20120625
  2. REBETOL CAPSULES 200MG [Suspect]
     Dosage: 400 MG, QD
     Route: 048

REACTIONS (3)
  - Hepatic encephalopathy [Recovered/Resolved]
  - Neutrophil count decreased [Not Recovered/Not Resolved]
  - Neutrophil count decreased [Recovered/Resolved]
